FAERS Safety Report 9886476 (Version 3)
Quarter: 2014Q1

REPORT INFORMATION
  Report Type: Spontaneous
  Country: US (occurrence: US)
  Receive Date: 20140210
  Receipt Date: 20140228
  Transmission Date: 20141002
  Serious: No
  Sender: FDA-Public Use
  Company Number: US-GILEAD-2014-0094074

PATIENT
  Age: 47 Year
  Sex: Male

DRUGS (3)
  1. LETAIRIS [Suspect]
     Indication: PORTOPULMONARY HYPERTENSION
     Dosage: 5MG PER DAY
     Route: 048
     Dates: start: 20130424
  2. VENTAVIS [Concomitant]
  3. ADCIRCA [Concomitant]

REACTIONS (1)
  - Hernia [Unknown]
